FAERS Safety Report 7152654-7 (Version None)
Quarter: 2010Q4

REPORT INFORMATION
  Report Type: 
  Country: None (occurrence: None)
  Receive Date: 20101213
  Receipt Date: 20101207
  Transmission Date: 20110411
  Serious: Yes (Hospitalization, Other)
  Sender: FDA-Public Use
  Company Number: FR-BRISTOL-MYERS SQUIBB COMPANY-15397714

PATIENT
  Age: 42 Year
  Sex: Female
  Weight: 100 kg

DRUGS (6)
  1. ABILIFY [Suspect]
     Indication: SCHIZOPHRENIA
     Dosage: ABILIFY 10 MG/D; INTERRUPTED ON 08OCT2010; RESTARTED ON 08NOV2010 DURATION:3WEEKS
     Route: 048
     Dates: start: 20100914
  2. HALDOL [Suspect]
     Indication: SCHIZOPHRENIA
     Dosage: TAKEN 80 TABS.ON THERAPY AT 5MG/D;
     Route: 048
  3. HAVLANE [Suspect]
  4. TEMESTA [Suspect]
     Dosage: TAKEN UNSPECIFIED NUMBERS OF TEMESTA TABS
     Route: 048
  5. DEPAKOTE [Suspect]
     Indication: SCHIZOPHRENIA
     Route: 048
  6. LEPTICUR [Concomitant]
     Route: 048

REACTIONS (6)
  - ASTHENIA [None]
  - CONFUSIONAL STATE [None]
  - DECUBITUS ULCER [None]
  - INTENTIONAL OVERDOSE [None]
  - LUNG DISORDER [None]
  - SUICIDE ATTEMPT [None]
